FAERS Safety Report 6422813-7 (Version None)
Quarter: 2009Q4

REPORT INFORMATION
  Report Type: 
  Country: None (occurrence: None)
  Receive Date: 20091102
  Receipt Date: 20091026
  Transmission Date: 20100525
  Serious: No
  Sender: FDA-Public Use
  Company Number: US-BAYER-200915990BCC

PATIENT
  Age: 18 Year
  Sex: Female
  Weight: 61 kg

DRUGS (2)
  1. ALEVE [Suspect]
     Indication: SELF INJURIOUS BEHAVIOUR
     Dosage: CONSUMER TOOK 6 TO 7 ALEVE
     Route: 048
     Dates: start: 20091025, end: 20091025
  2. BIRTH CONTROL MEDICATION [Concomitant]
     Route: 065

REACTIONS (2)
  - NAUSEA [None]
  - VOMITING [None]
